FAERS Safety Report 6303644-5 (Version None)
Quarter: 2009Q3

REPORT INFORMATION
  Report Type: 
  Country: None (occurrence: None)
  Receive Date: 20090807
  Receipt Date: 20090807
  Transmission Date: 20100115
  Serious: Yes (Disabling)
  Sender: FDA-Public Use
  Company Number: None

PATIENT
  Sex: Male
  Weight: 90.7194 kg

DRUGS (1)
  1. PROPECIA [Suspect]
     Indication: ALOPECIA
     Dosage: 1MG, ONCE DAILY, PO
     Route: 048
     Dates: start: 20050101, end: 20060101

REACTIONS (9)
  - DEPRESSION [None]
  - EJACULATION FAILURE [None]
  - FEELING ABNORMAL [None]
  - ORGANIC ERECTILE DYSFUNCTION [None]
  - PENILE SIZE REDUCED [None]
  - SEMEN VOLUME DECREASED [None]
  - SEXUAL DYSFUNCTION [None]
  - SUICIDAL IDEATION [None]
  - TESTICULAR PAIN [None]
